FAERS Safety Report 17574483 (Version 1)
Quarter: 2020Q1

REPORT INFORMATION
  Report Type: Spontaneous
  Country: US (occurrence: US)
  Receive Date: 20200324
  Receipt Date: 20200324
  Transmission Date: 20200409
  Serious: Yes (Hospitalization, Other)
  Sender: FDA-Public Use
  Company Number: US-CIPLA LTD.-2019US01060

PATIENT

DRUGS (7)
  1. SERTRALINE [Suspect]
     Active Substance: SERTRALINE HYDROCHLORIDE
     Dosage: 100 MILLIGRAM, UNK
     Route: 048
  2. ATORVASTATIN [Concomitant]
     Active Substance: ATORVASTATIN
     Indication: HYPERCHOLESTEROLAEMIA
     Dosage: 10 MILLIGRAM, QD (ONCE A DAY BY MOUTH), TABLET
     Route: 048
     Dates: start: 2017, end: 20171103
  3. XANAX [Concomitant]
     Active Substance: ALPRAZOLAM
     Indication: FEELING ABNORMAL
     Dosage: 0.5 MILLIGRAM, BID (TWICE A DAY BY MOUTH), TABLET
     Route: 048
     Dates: start: 2002
  4. ASPIRIN                            /00002701/ [Concomitant]
     Active Substance: ASPIRIN
     Indication: CARDIOVASCULAR DISORDER
     Dosage: 81 MILLIGRAM, QD (ONCE A DAY BY MOUTH), TABLET
     Route: 048
  5. SERTRALINE [Suspect]
     Active Substance: SERTRALINE HYDROCHLORIDE
     Indication: TRIGEMINAL NEURALGIA
     Dosage: 50 MILLIGRAM, UNK
     Route: 048
     Dates: start: 2002
  6. SERTRALINE [Suspect]
     Active Substance: SERTRALINE HYDROCHLORIDE
     Dosage: 25 MILLIGRAM, QD (BY MOUTH)
     Route: 048
  7. SIMVASTATIN. [Concomitant]
     Active Substance: SIMVASTATIN
     Indication: HYPERCHOLESTEROLAEMIA
     Dosage: 10 MILLIGRAM, QD (ONCE A DAY BY MOUTH), TABLET
     Route: 048

REACTIONS (2)
  - Drug withdrawal syndrome [Unknown]
  - Hypertension [Recovered/Resolved]

NARRATIVE: CASE EVENT DATE: 2016
